FAERS Safety Report 6297435-1 (Version None)
Quarter: 2009Q3

REPORT INFORMATION
  Report Type: 
  Country: None (occurrence: None)
  Receive Date: 20090805
  Receipt Date: 20090313
  Transmission Date: 20100115
  Serious: No
  Sender: FDA-Public Use
  Company Number: US-BAYER-200916691NA

PATIENT
  Age: 51 Year
  Sex: Female
  Weight: 104 kg

DRUGS (2)
  1. ULTRAVIST 370 [Suspect]
     Indication: COMPUTERISED TOMOGRAM ABDOMEN
     Dosage: TOTAL DAILY DOSE: 120 ML  UNIT DOSE: 500 ML
     Route: 042
     Dates: start: 20090313, end: 20090313
  2. AVALIDE [Concomitant]

REACTIONS (2)
  - ERYTHEMA [None]
  - PRURITUS [None]
